FAERS Safety Report 9516636 (Version 2)
Quarter: 2014Q1

REPORT INFORMATION
  Report Type: Spontaneous
  Country: FR (occurrence: FR)
  Receive Date: 20130911
  Receipt Date: 20140117
  Transmission Date: 20141002
  Serious: Yes (Other)
  Sender: FDA-Public Use
  Company Number: FR-GLAXOSMITHKLINE-B0919895A

PATIENT
  Age: 71 Year
  Sex: Male

DRUGS (11)
  1. SERETIDE [Suspect]
     Indication: ASTHMA
     Route: 055
  2. VENTOLINE [Suspect]
     Indication: ASTHMA
     Route: 055
  3. OXALIPLATINE [Suspect]
     Indication: CHOLANGIOCARCINOMA
     Route: 042
     Dates: start: 20130222, end: 20130628
  4. BROMAZEPAM [Suspect]
     Indication: ANXIETY
     Dosage: .5TAB PER DAY
     Route: 048
  5. GEMZAR [Suspect]
     Indication: CHOLANGIOCARCINOMA
     Route: 042
     Dates: start: 20130221
  6. SPIRIVA [Suspect]
     Indication: ASTHMA
     Dosage: 2UNIT PER DAY
     Route: 055
  7. TAREG [Suspect]
     Indication: HYPERTENSION
     Dosage: 80MG PER DAY
     Route: 048
  8. ZOLPIDEM TARTRATE [Suspect]
     Indication: INSOMNIA
     Dosage: 1UNIT PER DAY
     Route: 048
  9. OMEPRAZOLE [Suspect]
     Indication: PRODUCT USED FOR UNKNOWN INDICATION
     Dosage: 40MG PER DAY
     Route: 048
  10. FINASTERIDE [Suspect]
     Indication: PROSTATIC ADENOMA
     Dosage: 5MG PER DAY
     Route: 048
  11. FENOFIBRATE [Concomitant]
     Indication: HYPERCHOLESTEROLAEMIA
     Dosage: 1UNIT PER DAY
     Route: 048

REACTIONS (3)
  - Neuropathy peripheral [Not Recovered/Not Resolved]
  - Paraesthesia [Not Recovered/Not Resolved]
  - Feeling cold [Not Recovered/Not Resolved]
